FAERS Safety Report 4869804-5 (Version None)
Quarter: 2005Q4

REPORT INFORMATION
  Report Type: 
  Country: None (occurrence: None)
  Receive Date: 20051223
  Receipt Date: 20051220
  Transmission Date: 20060501
  Serious: Yes (Hospitalization, Other)
  Sender: FDA-Public Use
  Company Number: HQWYE112821DEC05

PATIENT
  Age: 81 Year
  Sex: Male
  Weight: 69.2 kg

DRUGS (5)
  1. MYLOTARG [Suspect]
     Indication: ACUTE MYELOID LEUKAEMIA
     Dosage: 18 MG 1X PER 1 DAY, INTRAVENOUS
     Route: 042
     Dates: start: 20050902, end: 20050902
  2. LEVAQUIN [Concomitant]
  3. FLOMAX (MORNIFLUMATE) [Concomitant]
  4. ACYCLOVIR [Concomitant]
  5. FLUCONAZOLE [Concomitant]

REACTIONS (4)
  - FEBRILE NEUTROPENIA [None]
  - HAEMATOCRIT DECREASED [None]
  - HAEMOGLOBIN DECREASED [None]
  - WHITE BLOOD CELL COUNT DECREASED [None]
